FAERS Safety Report 9600956 (Version 1)
Quarter: 2013Q4

REPORT INFORMATION
  Report Type: Spontaneous
  Country: US (occurrence: US)
  Receive Date: 20131004
  Receipt Date: 20131004
  Transmission Date: 20140711
  Serious: No
  Sender: FDA-Public Use
  Company Number: US-AMGEN-USASP2013038985

PATIENT
  Age: 53 Year
  Sex: Female

DRUGS (2)
  1. ENBREL [Suspect]
     Indication: RHEUMATOID ARTHRITIS
     Dosage: UNK UNK, QWK
     Route: 065
     Dates: start: 20130313
  2. METHOTREXATE [Concomitant]
     Dosage: UNK

REACTIONS (4)
  - Arthralgia [Recovered/Resolved]
  - Arthropathy [Recovered/Resolved]
  - Limb discomfort [Recovered/Resolved]
  - Injection site pain [Not Recovered/Not Resolved]
